FAERS Safety Report 23141258 (Version 1)
Quarter: 2023Q4

REPORT INFORMATION
  Report Type: Spontaneous
  Country: AU (occurrence: AU)
  Receive Date: 20231103
  Receipt Date: 20231103
  Transmission Date: 20240110
  Serious: Yes (Other)
  Sender: FDA-Public Use
  Company Number: None

PATIENT
  Age: 53 Year
  Sex: Male

DRUGS (20)
  1. DIPROSONE [Suspect]
     Active Substance: BETAMETHASONE DIPROPIONATE
     Dosage: UNK
     Route: 065
  2. COSENTYX [Suspect]
     Active Substance: SECUKINUMAB
     Indication: Psoriatic arthropathy
     Dosage: 150 MILLIGRAM; INTERVAL: 1 WEEK
     Route: 065
  3. OXYCODONE HYDROCHLORIDE [Suspect]
     Active Substance: OXYCODONE HYDROCHLORIDE
     Dosage: 5 MILLIGRAM
  4. FISH OIL [Suspect]
     Active Substance: FISH OIL
     Dosage: : 8 GRAM; INTERVAL: 1 DAY
     Route: 065
  5. NEXIUM I.V. [Suspect]
     Active Substance: ESOMEPRAZOLE SODIUM
     Dosage: 20 MILLIGRAM; INTERVAL: 2 DAY
     Route: 065
  6. TESTOSTERONE [Suspect]
     Active Substance: TESTOSTERONE
     Dosage: UNK
  7. ATROPINE [Suspect]
     Active Substance: ATROPINE
     Dosage: UNK
  8. BUPRENORPHINE HYDROCHLORIDE [Suspect]
     Active Substance: BUPRENORPHINE HYDROCHLORIDE
     Dosage: 15 MICROGRAM, INTERVAL: 1 WEEK (QW)
     Route: 062
  9. FLECAINIDE ACETATE [Suspect]
     Active Substance: FLECAINIDE ACETATE
     Dosage: 100 MILLIGRAM; INTERVAL: 2 DAY
     Route: 065
  10. FOLIC ACID [Suspect]
     Active Substance: FOLIC ACID
     Dosage: 500 MICROGRAM, INTERVAL: 1 DAY (QD)
  11. IBUPROFEN [Suspect]
     Active Substance: IBUPROFEN
     Dosage: UNK
  12. METHOTREXATE [Suspect]
     Active Substance: METHOTREXATE
     Indication: Psoriatic arthropathy
     Dosage: 25 MILLIGRAM, INTERVAL: 1 WEEK (QW)
     Dates: start: 201809
  13. METHOTREXATE [Suspect]
     Active Substance: METHOTREXATE
     Dosage: 20 MILLIGRAM; INTERVAL: 3 WEEK
     Route: 048
  14. METHOTREXATE [Suspect]
     Active Substance: METHOTREXATE
     Dosage: 20 MILLIGRAM; INTERVAL: 3 WEEK
     Route: 048
  15. METHOTREXATE [Suspect]
     Active Substance: METHOTREXATE
     Dosage: 10 MILLIGRAM; INTERVAL: 1
     Route: 048
  16. ONDANSETRON [Suspect]
     Active Substance: ONDANSETRON
     Dosage: 4 MILLIGRAM
     Route: 065
  17. OXYCODONE [Suspect]
     Active Substance: OXYCODONE
     Dosage: UNK
  18. ACETAMINOPHEN [Suspect]
     Active Substance: ACETAMINOPHEN
     Dosage: UNK
  19. PIROXICAM [Suspect]
     Active Substance: PIROXICAM
     Dosage: UNK
  20. COSENTYX [Concomitant]
     Active Substance: SECUKINUMAB
     Dosage: PRE-FILLED SYRINGE (DEVICE)

REACTIONS (13)
  - Arthralgia [Recovering/Resolving]
  - Gastrointestinal disorder [Unknown]
  - Haematochezia [Unknown]
  - Inflammatory pain [Unknown]
  - Nausea [Recovered/Resolved]
  - Osteopenia [Unknown]
  - Palmoplantar pustulosis [Recovering/Resolving]
  - Pancreatitis [Unknown]
  - Plantar fasciitis [Not Recovered/Not Resolved]
  - Psoriasis [Unknown]
  - Psoriatic arthropathy [Unknown]
  - Renal impairment [Unknown]
  - Secondary hypogonadism [Unknown]
